FAERS Safety Report 4760150-7 (Version None)
Quarter: 2005Q3

REPORT INFORMATION
  Report Type: 
  Country: None (occurrence: None)
  Receive Date: 20050831
  Receipt Date: 20050831
  Transmission Date: 20060218
  Serious: Yes (Hospitalization)
  Sender: FDA-Public Use
  Company Number: None

PATIENT
  Age: 49 Year
  Sex: Male
  Weight: 73 kg

DRUGS (10)
  1. GEFITINIB [Suspect]
     Indication: GLIOBLASTOMA MULTIFORME
     Dosage: 250 MG PO WEEKLY
     Route: 048
     Dates: start: 20050829
  2. RAD 001 [Suspect]
     Indication: GLIOBLASTOMA MULTIFORME
     Dosage: 70 MG PO WEEKLY
     Route: 048
     Dates: start: 20050829
  3. KEPPRA [Concomitant]
  4. ADVIL [Concomitant]
  5. TETRACYCLINE [Concomitant]
  6. COLACE [Concomitant]
  7. BENADRYL [Concomitant]
  8. CALCITRIOL [Concomitant]
  9. CELEBREX [Concomitant]
  10. LIPITOR [Concomitant]

REACTIONS (4)
  - BRAIN OEDEMA [None]
  - BRAIN SCAN ABNORMAL [None]
  - CONVULSION [None]
  - HEMIPARESIS [None]
